FAERS Safety Report 4647707-9 (Version None)
Quarter: 2005Q2

REPORT INFORMATION
  Report Type: 
  Country: None (occurrence: None)
  Receive Date: 20050426
  Receipt Date: 20050404
  Transmission Date: 20051028
  Serious: No
  Sender: FDA-Public Use
  Company Number: USA050494769

PATIENT
  Age: 57 Year
  Sex: Female
  Weight: 51 kg

DRUGS (9)
  1. CYMBALTA [Suspect]
     Indication: FIBROMYALGIA
     Dosage: 30 MG DAY
     Dates: start: 20050201, end: 20050301
  2. ESTROGENS CONJUGATED W/PROTESTERONE [Concomitant]
  3. ATIVAN [Concomitant]
  4. SOMA [Concomitant]
  5. ALLEGRA [Concomitant]
  6. GUAIFED-PD [Concomitant]
  7. NEXIUM [Concomitant]
  8. MEVACOR [Concomitant]
  9. SPIRONOLACTONE W/ HYDROCHLOROTHIAZIDE [Concomitant]

REACTIONS (5)
  - ALANINE AMINOTRANSFERASE INCREASED [None]
  - ANOREXIA [None]
  - ASPARTATE AMINOTRANSFERASE INCREASED [None]
  - BLOOD ALKALINE PHOSPHATASE INCREASED [None]
  - NAUSEA [None]
